FAERS Safety Report 24200948 (Version 1)
Quarter: 2024Q3

REPORT INFORMATION
  Report Type: Spontaneous
  Country: FR (occurrence: FR)
  Receive Date: 20240812
  Receipt Date: 20240812
  Transmission Date: 20241017
  Serious: Yes (Hospitalization)
  Sender: AMGEN
  Company Number: None

PATIENT
  Age: 72 Year
  Sex: Female
  Weight: 46.2 kg

DRUGS (7)
  1. MVASI [Suspect]
     Active Substance: BEVACIZUMAB-AWWB
     Indication: Adenocarcinoma of colon
     Dosage: 245 MILLIGRAM, Q2WK (J1 J15 (J1=J28))
     Route: 040
     Dates: start: 20240321, end: 20240626
  2. OXALIPLATIN [Suspect]
     Active Substance: OXALIPLATIN
     Indication: Adenocarcinoma of colon
     Dosage: 120 MILLIGRAM, Q2WK (J1 J15 (J1=J28))
     Route: 040
     Dates: start: 20240529, end: 20240626
  3. OXALIPLATIN [Suspect]
     Active Substance: OXALIPLATIN
     Dosage: 150 MILLIGRAM, Q2WK (J1 J15 (J1=J28))
     Route: 040
     Dates: start: 20240321, end: 20240515
  4. PREDNISONE [Suspect]
     Active Substance: PREDNISONE
     Indication: Organising pneumonia
     Dosage: 20 MILLIGRAM, QD
     Route: 048
     Dates: start: 20240120
  5. PREDNISONE [Suspect]
     Active Substance: PREDNISONE
     Dosage: 40 MILLIGRAM, QD
     Route: 048
     Dates: start: 20240113, end: 20240119
  6. FLUOROURACIL [Suspect]
     Active Substance: FLUOROURACIL
     Indication: Adenocarcinoma of colon
     Dosage: 3600 MILLIGRAM, Q2WK (J1 J15 (J1=J28))
     Route: 040
     Dates: start: 20240321, end: 20240626
  7. FLUOROURACIL [Suspect]
     Active Substance: FLUOROURACIL
     Dosage: 600 MILLIGRAM, Q2WK (J1 J15 (J1=J28))
     Route: 040
     Dates: start: 20240321, end: 20240418

REACTIONS (1)
  - Pneumocystis jirovecii pneumonia [Recovering/Resolving]

NARRATIVE: CASE EVENT DATE: 20240626
